FAERS Safety Report 7923059-3 (Version None)
Quarter: 2011Q4

REPORT INFORMATION
  Report Type: 
  Country: None (occurrence: None)
  Receive Date: 20111117
  Receipt Date: 20110127
  Transmission Date: 20120403
  Serious: Yes (Hospitalization)
  Sender: FDA-Public Use
  Company Number: US-AMGEN-USASP2011005263

PATIENT
  Age: 62 Year
  Sex: Female

DRUGS (2)
  1. ENBREL [Suspect]
     Indication: PSORIATIC ARTHROPATHY
     Dates: start: 20030101, end: 20110109
  2. METHOTREXATE [Concomitant]
     Dates: start: 20030101

REACTIONS (2)
  - STREPTOCOCCAL INFECTION [None]
  - PHARYNGITIS [None]
